FAERS Safety Report 5683240-3 (Version None)
Quarter: 2008Q1

REPORT INFORMATION
  Report Type: 
  Country: None (occurrence: None)
  Receive Date: 20080327
  Receipt Date: 20080317
  Transmission Date: 20080703
  Serious: Yes (Hospitalization, Other)
  Sender: FDA-Public Use
  Company Number: TR-PFIZER INC-2008025132

PATIENT
  Age: 41 Year
  Sex: Male

DRUGS (2)
  1. ATORVASTATIN CALCIUM [Interacting]
     Indication: HYPERLIPIDAEMIA
     Dosage: DAILY DOSE:20MG
  2. COLCHICINE [Suspect]
     Indication: RENAL AMYLOIDOSIS
     Dosage: DAILY DOSE:1MG

REACTIONS (8)
  - ALANINE AMINOTRANSFERASE INCREASED [None]
  - ASPARTATE AMINOTRANSFERASE INCREASED [None]
  - BLOOD CHOLESTEROL INCREASED [None]
  - DRUG INTERACTION [None]
  - DYSPNOEA [None]
  - MYOPATHY [None]
  - NEUROPATHY PERIPHERAL [None]
  - PROTEINURIA [None]
